FAERS Safety Report 19999713 (Version 4)
Quarter: 2022Q4

REPORT INFORMATION
  Report Type: Spontaneous
  Country: CA (occurrence: CA)
  Receive Date: 20211026
  Receipt Date: 20221206
  Transmission Date: 20230113
  Serious: Yes (Other)
  Sender: FDA-Public Use
  Company Number: CA-PFIZER INC-202101325484

PATIENT
  Age: 41 Year
  Sex: Female
  Weight: 55.329 kg

DRUGS (26)
  1. XELJANZ [Suspect]
     Active Substance: TOFACITINIB CITRATE
     Indication: Colitis ulcerative
     Dosage: 1 DF
     Route: 048
     Dates: start: 20210924
  2. XELJANZ [Suspect]
     Active Substance: TOFACITINIB CITRATE
     Dosage: 10 MG, 2X/DAY
     Route: 048
     Dates: start: 2022
  3. XELJANZ [Suspect]
     Active Substance: TOFACITINIB CITRATE
     Dosage: 5 MG, 2X/DAY
     Route: 048
     Dates: start: 2022
  4. XELJANZ [Suspect]
     Active Substance: TOFACITINIB CITRATE
     Dosage: 5 MG, 1X/DAY
     Route: 048
     Dates: start: 2022
  5. XELJANZ [Suspect]
     Active Substance: TOFACITINIB CITRATE
     Dosage: 5 MG EVERY 2 DAY
     Route: 048
     Dates: start: 2022
  6. XELJANZ [Suspect]
     Active Substance: TOFACITINIB CITRATE
     Dosage: 5 MG, 1X/DAY
     Route: 048
  7. SULFASALAZINE [Concomitant]
     Active Substance: SULFASALAZINE
     Dosage: 1 DF
     Route: 065
     Dates: start: 202109
  8. SULFASALAZINE [Concomitant]
     Active Substance: SULFASALAZINE
     Dosage: 3 MG, 1X/DAY
     Route: 065
  9. SULFASALAZINE [Concomitant]
     Active Substance: SULFASALAZINE
     Dosage: 1 G, 3X/DAY
     Route: 065
     Dates: start: 202109
  10. MIRTAZAPINE [Concomitant]
     Active Substance: MIRTAZAPINE
     Dosage: 1 DF
     Route: 065
  11. ZOPICLONE [Concomitant]
     Active Substance: ZOPICLONE
     Dosage: UNK
  12. PANTOPRAZOLE [Concomitant]
     Active Substance: PANTOPRAZOLE
     Dosage: UNK
  13. NYSTATIN [Concomitant]
     Active Substance: NYSTATIN
     Dosage: 5 MG, 1X/DAY
     Route: 065
  14. PEPPERMINT OIL [Concomitant]
     Active Substance: PEPPERMINT OIL
  15. UNSPECIFIED IRON SUPPLEMENTS [Concomitant]
  16. LORAZEPAM [Concomitant]
     Active Substance: LORAZEPAM
     Dosage: 1 MG, 1X/DAY
     Route: 065
  17. LACTASE [Concomitant]
     Active Substance: LACTASE
     Dosage: 1 DF, 1X/DAY, PRN
     Route: 065
  18. REMERON [Concomitant]
     Active Substance: MIRTAZAPINE
     Dosage: 7.5 MG, DAILY
     Route: 065
  19. CALCIUM TUMS [Concomitant]
     Dosage: 400 MG, 1X/DAY
     Route: 065
  20. CHOLECALCIFEROL [Concomitant]
     Active Substance: CHOLECALCIFEROL
     Dosage: 1 DF, 2X/DAY, 2000 UNITS
     Route: 065
  21. FOLIC ACID [Concomitant]
     Active Substance: FOLIC ACID
     Dosage: 1 MG, 1X/DAY
     Route: 065
  22. PREDNISONE [Concomitant]
     Active Substance: PREDNISONE
     Dosage: 40 MG, TAPERING OFF
     Route: 065
  23. PREDNISONE [Concomitant]
     Active Substance: PREDNISONE
     Dosage: 1 DF, DOSAGE INFO: UNKNOWN
     Route: 065
     Dates: start: 201709
  24. PREDNISONE [Concomitant]
     Active Substance: PREDNISONE
     Dosage: 2.5 MG, DAILY
  25. ENTYVIO [Concomitant]
     Active Substance: VEDOLIZUMAB
     Dosage: UNK
  26. STELARA [Concomitant]
     Active Substance: USTEKINUMAB
     Dosage: DOSE ESCALATED TO EVERY 4 WEEKS FROM JUL2021
     Dates: start: 202009

REACTIONS (29)
  - Crohn^s disease [Not Recovered/Not Resolved]
  - Rectal haemorrhage [Not Recovered/Not Resolved]
  - Iron deficiency anaemia [Unknown]
  - Haemorrhoids [Not Recovered/Not Resolved]
  - Colitis [Not Recovered/Not Resolved]
  - Red blood cell count decreased [Not Recovered/Not Resolved]
  - Haemoglobin decreased [Not Recovered/Not Resolved]
  - Red cell distribution width increased [Not Recovered/Not Resolved]
  - Bowel movement irregularity [Not Recovered/Not Resolved]
  - Mucous stools [Not Recovered/Not Resolved]
  - Rectal spasm [Not Recovered/Not Resolved]
  - Condition aggravated [Unknown]
  - Exposure to SARS-CoV-2 [Unknown]
  - Anxiety [Unknown]
  - Weight increased [Unknown]
  - Flatulence [Unknown]
  - Abdominal distension [Unknown]
  - Malaise [Unknown]
  - Upper respiratory tract infection [Unknown]
  - Poor quality sleep [Unknown]
  - Alopecia [Unknown]
  - Nausea [Recovering/Resolving]
  - Gastroenteritis viral [Unknown]
  - Ovarian cyst [Unknown]
  - Optic nerve disorder [Unknown]
  - Illness [Unknown]
  - COVID-19 [Unknown]
  - Off label use [Unknown]
  - Drug ineffective [Unknown]

NARRATIVE: CASE EVENT DATE: 20210901
